FAERS Safety Report 10636383 (Version 1)
Quarter: 2014Q4

REPORT INFORMATION
  Report Type: Spontaneous
  Country: US (occurrence: US)
  Receive Date: 20141207
  Receipt Date: 20141207
  Transmission Date: 20150529
  Serious: Yes (Other)
  Sender: FDA-Public Use
  Company Number: US-UCBSA-2014020333

PATIENT
  Age: 52 Year
  Sex: Female

DRUGS (1)
  1. CIMZIA [Suspect]
     Active Substance: CERTOLIZUMAB PEGOL
     Indication: RHEUMATOID ARTHRITIS
     Dosage: 400 MG, EV 2 WEEKS(QOW), STRENGTH: 200 MG,  UNDER THE SKIN
     Route: 058
     Dates: start: 20141029, end: 20141107

REACTIONS (1)
  - Breast cancer stage I [Unknown]

NARRATIVE: CASE EVENT DATE: 20141103
